FAERS Safety Report 5320819-2 (Version None)
Quarter: 2007Q2

REPORT INFORMATION
  Report Type: 
  Country: None (occurrence: None)
  Receive Date: 20070502
  Receipt Date: 20070417
  Transmission Date: 20071010
  Serious: Yes (Death)
  Sender: FDA-Public Use
  Company Number: 117

PATIENT
  Sex: Female

DRUGS (1)
  1. FAZACLO ODT [Suspect]
     Dosage: 300 MG PO DAILY
     Route: 048
     Dates: start: 20061222, end: 20070101

REACTIONS (1)
  - ACUTE RESPIRATORY DISTRESS SYNDROME [None]
